FAERS Safety Report 6092715-7 (Version None)
Quarter: 2009Q1

REPORT INFORMATION
  Report Type: 
  Country: None (occurrence: None)
  Receive Date: 20090225
  Receipt Date: 20090216
  Transmission Date: 20090719
  Serious: Yes (Hospitalization)
  Sender: FDA-Public Use
  Company Number: IE-ABBOTT-09P-167-0495532-00

PATIENT
  Age: 75 Year
  Sex: Female

DRUGS (6)
  1. NIASPAN [Suspect]
     Indication: DYSLIPIDAEMIA
  2. BISOPROLOL [Concomitant]
     Indication: BLOOD PRESSURE
  3. BISOPROLOL [Concomitant]
     Indication: ARRHYTHMIA
  4. RAMPRIL [Concomitant]
     Indication: BLOOD PRESSURE
  5. FENOFIBRATE [Concomitant]
     Indication: BLOOD TRIGLYCERIDES INCREASED
  6. ROSUVASTINE [Concomitant]
     Indication: DYSLIPIDAEMIA

REACTIONS (2)
  - ACUTE CORONARY SYNDROME [None]
  - MYOCARDIAL INFARCTION [None]
